FAERS Safety Report 21138521 (Version 5)
Quarter: 2022Q4

REPORT INFORMATION
  Report Type: Report from Study
  Country: US (occurrence: US)
  Receive Date: 20220727
  Receipt Date: 20221012
  Transmission Date: 20230113
  Serious: Yes (Other)
  Sender: FDA-Public Use
  Company Number: US-NOVARTISPH-NVSC2022US169833

PATIENT
  Age: 56 Year
  Sex: Female

DRUGS (2)
  1. ENTRESTO [Suspect]
     Active Substance: SACUBITRIL\VALSARTAN
     Indication: Cardiac failure congestive
     Dosage: 1 DOSAGE FORM, BID (24/26 MG)
     Route: 048
     Dates: start: 202205
  2. ENTRESTO [Suspect]
     Active Substance: SACUBITRIL\VALSARTAN
     Dosage: 1 DOSAGE FORM, BID (24/26 MG)
     Route: 048
     Dates: start: 20220622, end: 20220624

REACTIONS (11)
  - Myocardial infarction [Unknown]
  - Chest discomfort [Unknown]
  - Haemorrhage [Unknown]
  - Dry mouth [Not Recovered/Not Resolved]
  - Abdominal neoplasm [Unknown]
  - Pain [Unknown]
  - Emotional distress [Unknown]
  - Lymphocyte count increased [Unknown]
  - Dyspnoea [Unknown]
  - Hypersensitivity [Unknown]
  - Product dose omission issue [Recovered/Resolved]

NARRATIVE: CASE EVENT DATE: 20220722
